FAERS Safety Report 6046933-4 (Version None)
Quarter: 2009Q1

REPORT INFORMATION
  Report Type: 
  Country: None (occurrence: None)
  Receive Date: 20090122
  Receipt Date: 20090107
  Transmission Date: 20090719
  Serious: Yes (Hospitalization)
  Sender: FDA-Public Use
  Company Number: CH-PFIZER INC-2009153095

PATIENT

DRUGS (7)
  1. GABAPENTIN [Suspect]
     Indication: PAIN
     Route: 048
     Dates: end: 20081101
  2. HYDROMORPHONE HCL [Suspect]
     Indication: PAIN
     Dates: end: 20081101
  3. TRYPTIZOL [Suspect]
     Indication: PAIN
     Route: 048
     Dates: end: 20081101
  4. RIVOTRIL [Suspect]
     Indication: PAIN
     Route: 042
     Dates: end: 20081101
  5. HYDROMORPHONE [Concomitant]
     Dosage: 16-8-16 MG AND 3X4MG PER DAY IN RESERVE
  6. AMITRIPTYLINE [Concomitant]
     Dosage: 75 MG, 1X/DAY
  7. CLONAZEPAM [Concomitant]
     Dosage: 1.5 MG, 1X/DAY

REACTIONS (2)
  - COMA [None]
  - RESPIRATORY ACIDOSIS [None]
